FAERS Safety Report 4588499-1 (Version None)
Quarter: 2005Q1

REPORT INFORMATION
  Report Type: 
  Country: None (occurrence: None)
  Receive Date: 20050216
  Receipt Date: 20050216
  Transmission Date: 20050727
  Serious: Yes (Disabling)
  Sender: FDA-Public Use
  Company Number: None

PATIENT
  Age: 64 Year
  Sex: Female
  Weight: 72.5755 kg

DRUGS (2)
  1. CORDARONE [Suspect]
     Indication: VENTRICULAR EXTRASYSTOLES
     Dosage: ONE TABLET DAILY BY MOUTH
     Route: 048
     Dates: start: 19821101, end: 20010101
  2. CORDARONE [Suspect]
     Indication: VENTRICULAR TACHYCARDIA
     Dosage: ONE TABLET DAILY BY MOUTH
     Route: 048
     Dates: start: 19821101, end: 20010101

REACTIONS (6)
  - COORDINATION ABNORMAL [None]
  - CORNEAL DEPOSITS [None]
  - DRUG INEFFECTIVE [None]
  - NEUROPATHY PERIPHERAL [None]
  - PHOTOSENSITIVITY REACTION [None]
  - TREMOR [None]
